FAERS Safety Report 19581405 (Version 1)
Quarter: 2021Q3

REPORT INFORMATION
  Report Type: Spontaneous
  Country: DE (occurrence: DE)
  Receive Date: 20210719
  Receipt Date: 20210719
  Transmission Date: 20211014
  Serious: Yes (Other)
  Sender: FDA-Public Use
  Company Number: NVSC2021DE140406

PATIENT
  Sex: Female

DRUGS (1)
  1. PIQRAY [Suspect]
     Active Substance: ALPELISIB
     Indication: BREAST CANCER METASTATIC
     Dosage: UNK
     Route: 065
     Dates: start: 202010, end: 202103

REACTIONS (5)
  - Malignant neoplasm progression [Unknown]
  - Breast cancer metastatic [Unknown]
  - Diarrhoea [Unknown]
  - Diabetes mellitus [Unknown]
  - Hyperglycaemia [Unknown]
